FAERS Safety Report 11752241 (Version 2)
Quarter: 2016Q1

REPORT INFORMATION
  Report Type: Spontaneous
  Country: US (occurrence: US)
  Receive Date: 20151118
  Receipt Date: 20160219
  Transmission Date: 20160525
  Serious: No
  Sender: FDA-Public Use
  Company Number: US-GLAXOSMITHKLINE-US2015161142

PATIENT
  Sex: Female

DRUGS (1)
  1. BREO ELLIPTA [Suspect]
     Active Substance: FLUTICASONE FUROATE\VILANTEROL TRIFENATATE
     Indication: ASTHMA
     Dosage: 1 PUFF(S), QD
     Route: 055
     Dates: start: 2014

REACTIONS (6)
  - Drug ineffective [Unknown]
  - Device use error [Unknown]
  - Device issue [Unknown]
  - Product taste abnormal [Unknown]
  - Product quality issue [Unknown]
  - Product physical issue [Unknown]
